FAERS Safety Report 7780719-5 (Version None)
Quarter: 2011Q3

REPORT INFORMATION
  Report Type: 
  Country: None (occurrence: None)
  Receive Date: 20110927
  Receipt Date: 20110713
  Transmission Date: 20111222
  Serious: No
  Sender: FDA-Public Use
  Company Number: US-BRISTOL-MYERS SQUIBB COMPANY-15721244

PATIENT
  Age: 45 Year
  Sex: Female
  Weight: 113 kg

DRUGS (2)
  1. AVAPRO [Suspect]
     Dates: start: 20110101
  2. HYDROCHLOROTHIAZIDE [Suspect]
     Dates: start: 20110101

REACTIONS (3)
  - ARTHRALGIA [None]
  - MUSCULAR WEAKNESS [None]
  - PAIN [None]
